FAERS Safety Report 16267345 (Version 1)
Quarter: 2019Q2

REPORT INFORMATION
  Report Type: Spontaneous
  Country: JP (occurrence: JP)
  Receive Date: 20190502
  Receipt Date: 20190502
  Transmission Date: 20190711
  Serious: Yes (Other)
  Sender: FDA-Public Use
  Company Number: JP-INCYTE CORPORATION-2019IN004230

PATIENT

DRUGS (6)
  1. CYLOCIDE [Concomitant]
     Active Substance: CYTARABINE
     Indication: ACUTE LEUKAEMIA
  2. JAKAVI [Suspect]
     Active Substance: RUXOLITINIB
     Dosage: 20 MG, UNK
     Route: 048
  3. JAKAVI [Suspect]
     Active Substance: RUXOLITINIB
     Dosage: UNK
     Route: 048
  4. JAKAVI [Suspect]
     Active Substance: RUXOLITINIB
     Indication: TRANSFORMATION TO ACUTE MYELOID LEUKAEMIA
     Dosage: 10 MG, UNK
     Route: 048
     Dates: start: 20181221
  5. JAKAVI [Suspect]
     Active Substance: RUXOLITINIB
     Dosage: 40 MG, UNK
     Route: 048
  6. CYLOCIDE [Concomitant]
     Active Substance: CYTARABINE
     Indication: MYELOFIBROSIS
     Dosage: 20 MG/M2, UNK
     Route: 065
     Dates: start: 20171025

REACTIONS (6)
  - Platelet count increased [Unknown]
  - Hypoxia [Unknown]
  - Myelofibrosis [Unknown]
  - Acute leukaemia [Unknown]
  - Lung infiltration [Unknown]
  - Blood lactate dehydrogenase increased [Unknown]

NARRATIVE: CASE EVENT DATE: 20190214
